FAERS Safety Report 14132113 (Version 4)
Quarter: 2018Q1

REPORT INFORMATION
  Report Type: Report from Study
  Country: US (occurrence: US)
  Receive Date: 20171026
  Receipt Date: 20180125
  Transmission Date: 20180508
  Serious: No
  Sender: FDA-Public Use
  Company Number: US-AMGEN-USASL2017127983

PATIENT
  Age: 62 Year
  Sex: Male

DRUGS (2)
  1. REPATHA [Suspect]
     Active Substance: EVOLOCUMAB
     Dosage: UNK
     Route: 065
  2. REPATHA [Suspect]
     Active Substance: EVOLOCUMAB
     Indication: HYPERCHOLESTEROLAEMIA
     Dosage: 140 MG, Q2WK
     Route: 065

REACTIONS (13)
  - Laboratory test abnormal [Unknown]
  - Back pain [Unknown]
  - Nausea [Unknown]
  - Dry skin [Unknown]
  - Eye pruritus [Unknown]
  - Arthralgia [Unknown]
  - Muscle spasms [Unknown]
  - Dreamy state [Not Recovered/Not Resolved]
  - Sinusitis [Unknown]
  - Blood cholesterol increased [Unknown]
  - Gastric disorder [Not Recovered/Not Resolved]
  - Eye irritation [Unknown]
  - Dry eye [Unknown]

NARRATIVE: CASE EVENT DATE: 201709
